FAERS Safety Report 16999314 (Version 2)
Quarter: 2020Q1

REPORT INFORMATION
  Report Type: Spontaneous
  Country: US (occurrence: US)
  Receive Date: 20191105
  Receipt Date: 20200206
  Transmission Date: 20200409
  Serious: No
  Sender: FDA-Public Use
  Company Number: US-RADIUS HEALTH INC.-2019US003672

PATIENT
  Age: 75 Year
  Sex: Female

DRUGS (4)
  1. LEVOTHYROXINE. [Concomitant]
     Active Substance: LEVOTHYROXINE
     Indication: HYPOTHYROIDISM
  2. COUMADIN [Concomitant]
     Active Substance: WARFARIN SODIUM
     Indication: CARDIAC VALVE DISEASE
  3. TYMLOS [Suspect]
     Active Substance: ABALOPARATIDE
     Dosage: 80 MCG, DAILY
     Route: 058
     Dates: start: 20190927
  4. TYMLOS [Suspect]
     Active Substance: ABALOPARATIDE
     Indication: OSTEOPOROSIS POSTMENOPAUSAL
     Dosage: 80 MCG, DAILY
     Route: 058
     Dates: start: 20190926

REACTIONS (12)
  - Confusional state [Recovered/Resolved]
  - White blood cell count decreased [Unknown]
  - Feeling hot [Recovered/Resolved]
  - Accidental overdose [Recovered/Resolved]
  - Disturbance in attention [Recovered/Resolved]
  - Product dose omission [Recovered/Resolved]
  - Feeling abnormal [Recovered/Resolved]
  - Autoscopy [Recovered/Resolved]
  - Hypoacusis [Unknown]
  - Wrong technique in product usage process [Recovered/Resolved]
  - Blood calcium increased [Unknown]
  - Parosmia [Recovered/Resolved]

NARRATIVE: CASE EVENT DATE: 20190928
